FAERS Safety Report 6626452-4 (Version None)
Quarter: 2010Q1

REPORT INFORMATION
  Report Type: 
  Country: None (occurrence: None)
  Receive Date: 20100310
  Receipt Date: 20100113
  Transmission Date: 20100710
  Serious: No
  Sender: FDA-Public Use
  Company Number: US-ABBOTT-10P-163-0619975-00

PATIENT
  Sex: Female
  Weight: 74.91 kg

DRUGS (3)
  1. LUPRON DEPOT [Suspect]
     Indication: ENDOMETRIOSIS
     Route: 050
     Dates: start: 20081001, end: 20090401
  2. UNKNOWN MEDICATION [Concomitant]
     Indication: NAUSEA
  3. CLOMID [Concomitant]
     Indication: INFERTILITY
     Dosage: 5 PILLS MONTHLY FOR 2 MONTHS
     Route: 048
     Dates: start: 20090101, end: 20090101

REACTIONS (6)
  - AMENORRHOEA [None]
  - ANXIETY [None]
  - DEPRESSION [None]
  - HEADACHE [None]
  - MOOD SWINGS [None]
  - WEIGHT INCREASED [None]
